FAERS Safety Report 18728200 (Version 1)
Quarter: 2021Q1

REPORT INFORMATION
  Report Type: Spontaneous
  Country: JP (occurrence: JP)
  Receive Date: 20210112
  Receipt Date: 20210112
  Transmission Date: 20210419
  Serious: Yes (Other)
  Sender: FDA-Public Use
  Company Number: JP-009507513-2101JPN000951J

PATIENT
  Age: 43 Year
  Sex: Male

DRUGS (8)
  1. ROXADUSTAT. [Suspect]
     Active Substance: ROXADUSTAT
     Dosage: 100 MILLIGRAM, ONCE
     Route: 048
  2. CARVEDILOL. [Concomitant]
     Active Substance: CARVEDILOL
     Dosage: UNK
     Route: 065
  3. SUREPOST [Concomitant]
     Active Substance: REPAGLINIDE
     Dosage: UNK
     Route: 065
  4. JANUVIA [Suspect]
     Active Substance: SITAGLIPTIN PHOSPHATE
     Indication: DIABETES MELLITUS
     Dosage: UNK
     Route: 048
  5. ROXADUSTAT. [Suspect]
     Active Substance: ROXADUSTAT
     Dosage: 70 MILLIGRAM, ONCE
     Route: 048
  6. REZALTAS [Concomitant]
     Active Substance: AZELNIDIPINE\OLMESARTAN MEDOXOMIL
     Dosage: UNK
     Route: 048
  7. NIFEDIPINE. [Concomitant]
     Active Substance: NIFEDIPINE
     Dosage: UNK
     Route: 065
  8. DARBEPOETIN ALFA(GENETICAL RECOMBINATION) [Concomitant]
     Dosage: 30 MICROGRAM,EVERY WEEK
     Route: 065

REACTIONS (2)
  - Shunt thrombosis [Unknown]
  - Blood pressure increased [Recovered/Resolved]
